FAERS Safety Report 18549569 (Version 1)
Quarter: 2020Q4

REPORT INFORMATION
  Report Type: Spontaneous
  Country: NL (occurrence: NL)
  Receive Date: 20201126
  Receipt Date: 20201126
  Transmission Date: 20210114
  Serious: Yes (Other)
  Sender: FDA-Public Use
  Company Number: NL-ACCORD-209209

PATIENT
  Age: 16 Year
  Sex: Male
  Weight: 65 kg

DRUGS (11)
  1. LORAZEPAM. [Concomitant]
     Active Substance: LORAZEPAM
     Dosage: 2,5 MG (MILLIGRAM)
  2. FOLIC ACID. [Concomitant]
     Active Substance: FOLIC ACID
     Dosage: 25 MG/ML (MILLIGRAM PER MILLILITER)
  3. GRANISETRON [Concomitant]
     Active Substance: GRANISETRON
     Dosage: 1 MG / ML (MILLIGRAMS PER MILLILITER)
  4. FORLAX [Concomitant]
     Active Substance: POLYETHYLENE GLYCOL 4000
     Dosage: 10 G (GRAM)
  5. MAGNESIUM GLUCONATE [Concomitant]
     Active Substance: MAGNESIUM GLUCONATE
     Dosage: 500 MG (MILLIGRAM)
  6. CIPROFLOXACIN. [Concomitant]
     Active Substance: CIPROFLOXACIN
     Dosage: 750 MG (MILLIGRAM)
  7. APREPITANT. [Concomitant]
     Active Substance: APREPITANT
     Dosage: 125+80 MG (MILLIGRAM)
  8. SODIUM BICARBONATE. [Concomitant]
     Active Substance: SODIUM BICARBONATE
     Dosage: 84 MG/ML (MILLIGRAM PER MILLILITER)
  9. LIDOCAINE/PRILOCAINE [Concomitant]
     Active Substance: LIDOCAINE\PRILOCAINE
     Dosage: STRENGTH: 25/25 MG / G
  10. METHOTREXATE. [Suspect]
     Active Substance: METHOTREXATE
     Indication: OSTEOSARCOMA
     Dosage: STRENGTH:1000MG/ML,12000MG / M2 PER INFUSION FOR 4 HOURS
     Dates: start: 20191210
  11. PARACETAMOL [Concomitant]
     Active Substance: ACETAMINOPHEN
     Dosage: 1000 MG (MILLIGRAM)

REACTIONS (1)
  - Generalised tonic-clonic seizure [Recovered/Resolved]

NARRATIVE: CASE EVENT DATE: 20200702
